FAERS Safety Report 19172715 (Version 1)
Quarter: 2021Q2

REPORT INFORMATION
  Report Type: Spontaneous
  Country: FR (occurrence: FR)
  Receive Date: 20210423
  Receipt Date: 20210423
  Transmission Date: 20210717
  Serious: Yes (Hospitalization, Other)
  Sender: FDA-Public Use
  Company Number: FR-AUROBINDO-AUR-APL-2021-016679

PATIENT
  Age: 63 Year
  Sex: Male
  Weight: 83 kg

DRUGS (3)
  1. LEVOFLOXACIN. [Suspect]
     Active Substance: LEVOFLOXACIN
     Indication: PNEUMONIA LEGIONELLA
     Dosage: 125 MILLIGRAM
     Route: 042
     Dates: start: 20201231, end: 20210121
  2. SPIRAMYCINE [Suspect]
     Active Substance: SPIRAMYCIN
     Indication: PNEUMONIA LEGIONELLA
     Dosage: 3 MEGA?INTERNATIONAL UNIT
     Route: 042
     Dates: start: 20201230, end: 20210120
  3. PANTOPRAZOLE [Suspect]
     Active Substance: PANTOPRAZOLE
     Indication: PRODUCT USED FOR UNKNOWN INDICATION
     Dosage: 40 MILLIGRAM, ONCE A DAY
     Route: 042
     Dates: start: 20210127

REACTIONS (1)
  - Drug reaction with eosinophilia and systemic symptoms [Recovered/Resolved]

NARRATIVE: CASE EVENT DATE: 20210201
